FAERS Safety Report 12160617 (Version 2)
Quarter: 2016Q2

REPORT INFORMATION
  Report Type: Spontaneous
  Country: DE (occurrence: DE)
  Receive Date: 20160308
  Receipt Date: 20160407
  Transmission Date: 20160815
  Serious: Yes (Disabling, Other)
  Sender: FDA-Public Use
  Company Number: DE-PFIZER INC-2016134906

PATIENT
  Age: 83 Year
  Sex: Male

DRUGS (8)
  1. TESTOGEL [Concomitant]
     Active Substance: TESTOSTERONE
     Dosage: UNK
     Dates: start: 201601, end: 20160329
  2. RANEXA [Concomitant]
     Active Substance: RANOLAZINE
     Dosage: 500 MG, UNK
     Dates: start: 201512
  3. FINASTERID [Concomitant]
     Dosage: 5 MG, UNK
     Dates: start: 201601
  4. ALPHA LIPOIC ACID [Concomitant]
     Active Substance: .ALPHA.-LIPOIC ACID
     Dosage: UNK
  5. UNACID PD [Suspect]
     Active Substance: SULTAMICILLIN TOSYLATE
     Indication: BACTERIURIA
     Dosage: 750 MG, 2X/DAY
     Dates: start: 20160220, end: 20160222
  6. ASPIRIN. [Concomitant]
     Active Substance: ASPIRIN
     Dosage: 100 MG, UNK
  7. VALSACOR [Concomitant]
     Active Substance: VALSARTAN
     Dosage: 160 MG, UNK
     Dates: start: 2011
  8. ATORVASTATIN [Concomitant]
     Active Substance: ATORVASTATIN
     Dosage: 20 MG, UNK
     Dates: start: 201510

REACTIONS (10)
  - Proctalgia [Not Recovered/Not Resolved]
  - Myalgia [Recovered/Resolved]
  - Polyneuropathy [Not Recovered/Not Resolved]
  - Influenza like illness [Not Recovered/Not Resolved]
  - Arthralgia [Recovered/Resolved]
  - Sleep disorder [Unknown]
  - Diarrhoea [Not Recovered/Not Resolved]
  - Quality of life decreased [Unknown]
  - Headache [Not Recovered/Not Resolved]
  - Pyrexia [Recovered/Resolved]

NARRATIVE: CASE EVENT DATE: 20160220
